FAERS Safety Report 7301932-7 (Version None)
Quarter: 2011Q1

REPORT INFORMATION
  Report Type: 
  Country: None (occurrence: None)
  Receive Date: 20110218
  Receipt Date: 20110207
  Transmission Date: 20110831
  Serious: Yes (Hospitalization)
  Sender: FDA-Public Use
  Company Number: FR-ROCHE-759027

PATIENT
  Sex: Male
  Weight: 77 kg

DRUGS (10)
  1. CICLOSPORIN [Suspect]
     Dosage: EVERYDAY
     Route: 048
     Dates: start: 20110120
  2. MYCOPHENOLATE MOFETIL [Suspect]
     Route: 048
     Dates: start: 20101218
  3. AMLOR [Concomitant]
     Dates: start: 20110123
  4. OROCAL [Concomitant]
     Dates: start: 20101221
  5. PREDNISONE [Suspect]
     Route: 048
     Dates: start: 20101219
  6. BACTRIM [Concomitant]
     Dates: start: 20101219
  7. CICLOSPORIN [Suspect]
     Dosage: FREQUENCY: EVERYDAY
     Route: 048
     Dates: start: 20101220
  8. AMLOR [Concomitant]
     Dates: start: 20100114, end: 20110120
  9. TAHOR [Concomitant]
     Dates: start: 20110118
  10. ROVALCYTE [Concomitant]
     Dates: start: 20101225

REACTIONS (1)
  - POSTRENAL FAILURE [None]
